FAERS Safety Report 8845697 (Version 24)
Quarter: 2017Q2

REPORT INFORMATION
  Report Type: Report from Study
  Country: US (occurrence: US)
  Receive Date: 20121017
  Receipt Date: 20170510
  Transmission Date: 20170830
  Serious: Yes (Death, Hospitalization)
  Sender: FDA-Public Use
  Company Number: US-ROCHE-1109766

PATIENT
  Age: 49 Year
  Sex: Male
  Weight: 111.1 kg

DRUGS (39)
  1. VEMURAFENIB [Suspect]
     Active Substance: VEMURAFENIB
     Indication: METASTATIC MALIGNANT MELANOMA
     Dosage: LAST DOSE PRIOR TO FEVER13/AUG2012
     Route: 048
     Dates: start: 20120813
  2. VEMURAFENIB [Suspect]
     Active Substance: VEMURAFENIB
     Dosage: LAST DOSE PRIOR TO VOMITING : 26/SEP/2012.?LAST DOSE PRIOR TO FATAL NEOPLASTIC MALIGNANT PROGRESSION
     Route: 048
     Dates: start: 20120918, end: 20120929
  3. CEFEPIME [Concomitant]
     Active Substance: CEFEPIME HYDROCHLORIDE
  4. DEXTROSE. [Concomitant]
     Active Substance: DEXTROSE
     Route: 042
     Dates: start: 20120829, end: 20120831
  5. NORMAL SALINE [Concomitant]
     Active Substance: SODIUM CHLORIDE
     Indication: RENAL FAILURE
     Dosage: 1 OTHER
     Route: 042
     Dates: start: 20121003, end: 20121003
  6. GABAPENTIN. [Concomitant]
     Active Substance: GABAPENTIN
     Indication: ARTHRALGIA
     Route: 048
     Dates: start: 20121019
  7. ACYCLOVIR. [Concomitant]
     Active Substance: ACYCLOVIR
     Route: 048
     Dates: start: 20120901, end: 20120918
  8. SODIUM BICARBONATE. [Concomitant]
     Active Substance: SODIUM BICARBONATE
     Dosage: ON HOLD
     Route: 042
  9. HYDROCODONE HCL [Concomitant]
     Route: 048
     Dates: start: 20121014, end: 20121014
  10. NORMAL SALINE [Concomitant]
     Active Substance: SODIUM CHLORIDE
     Dosage: 1 OTHER
     Route: 042
     Dates: start: 20121003, end: 20121003
  11. NORMAL SALINE [Concomitant]
     Active Substance: SODIUM CHLORIDE
     Dosage: 1 OTHER
     Route: 042
     Dates: start: 20120904, end: 20120904
  12. FENTANYL. [Concomitant]
     Active Substance: FENTANYL
     Indication: MYALGIA
     Route: 062
     Dates: start: 20121019
  13. CYMBALTA [Concomitant]
     Active Substance: DULOXETINE HYDROCHLORIDE
     Indication: ANXIETY
     Route: 048
     Dates: start: 20121019
  14. ATEZOLIZUMAB [Suspect]
     Active Substance: ATEZOLIZUMAB
     Indication: METASTATIC MALIGNANT MELANOMA
     Dosage: LAST DOSE PRIOR TO DEHYDRATION, FEVER: 13/AUG/2012.
     Route: 042
     Dates: start: 20120813, end: 20120904
  15. VEMURAFENIB [Suspect]
     Active Substance: VEMURAFENIB
     Dosage: MOST RECENT DOSE PRIOR TO DEHYDRATION: 720 MG ON 2/OCT/2012.?DISCONTINUED FROM PROTOCOL ON 04/NOV/20
     Route: 048
     Dates: end: 20121002
  16. HYDROXYZINE [Concomitant]
     Active Substance: HYDROXYZINE HYDROCHLORIDE
  17. ONDANSETRON [Concomitant]
     Active Substance: ONDANSETRON
     Indication: NAUSEA
     Route: 048
     Dates: start: 20120919, end: 20121104
  18. DAPTOMYCIN. [Concomitant]
     Active Substance: DAPTOMYCIN
  19. PROTONIX [Concomitant]
     Active Substance: PANTOPRAZOLE SODIUM
     Indication: GASTROOESOPHAGEAL REFLUX DISEASE
     Route: 048
     Dates: start: 20120918, end: 20121104
  20. FENTANYL. [Concomitant]
     Active Substance: FENTANYL
     Indication: ARTHRALGIA
  21. IBUPROFEN. [Concomitant]
     Active Substance: IBUPROFEN
     Indication: HEADACHE
     Route: 048
     Dates: start: 20000601, end: 20121104
  22. HYDROCODONE HCL [Concomitant]
     Indication: ARTHRALGIA
     Route: 048
     Dates: start: 20120827, end: 20120901
  23. PRILOSEC [Concomitant]
     Active Substance: OMEPRAZOLE MAGNESIUM
     Indication: GASTROOESOPHAGEAL REFLUX DISEASE
     Route: 048
     Dates: start: 20120919, end: 20121104
  24. NORMAL SALINE [Concomitant]
     Active Substance: SODIUM CHLORIDE
     Dosage: 1 OTHER
     Route: 042
     Dates: start: 20120906, end: 20120906
  25. VANCOMYCIN [Concomitant]
     Active Substance: VANCOMYCIN
     Indication: INFECTION PROPHYLAXIS
     Route: 050
     Dates: start: 20120828, end: 20120828
  26. DILAUDID [Concomitant]
     Active Substance: HYDROMORPHONE HYDROCHLORIDE
     Indication: ARTHRALGIA
     Route: 048
     Dates: start: 20121019
  27. IBUPROFEN. [Concomitant]
     Active Substance: IBUPROFEN
     Indication: CONSTIPATION
     Route: 048
     Dates: start: 20120904
  28. MICAFUNGIN [Concomitant]
     Active Substance: MICAFUNGIN
     Indication: OROPHARYNGEAL PAIN
     Route: 042
     Dates: start: 20120829, end: 20120831
  29. ATIVAN [Concomitant]
     Active Substance: LORAZEPAM
     Indication: ANXIETY
     Route: 048
     Dates: start: 20120918, end: 20121104
  30. ZOFRAN [Concomitant]
     Active Substance: ONDANSETRON HYDROCHLORIDE
     Indication: NAUSEA
     Route: 048
     Dates: start: 20120827
  31. NORMAL SALINE [Concomitant]
     Active Substance: SODIUM CHLORIDE
     Dosage: 1 OTHER
     Route: 042
     Dates: start: 20120918, end: 20120918
  32. NORMAL SALINE [Concomitant]
     Active Substance: SODIUM CHLORIDE
     Dosage: 1 OTHER
     Route: 042
     Dates: start: 20120919, end: 20120921
  33. NORMAL SALINE [Concomitant]
     Active Substance: SODIUM CHLORIDE
     Dosage: 1 OTHER
     Route: 042
     Dates: start: 20120924, end: 20120924
  34. ZITHROMAX [Concomitant]
     Active Substance: AZITHROMYCIN DIHYDRATE
     Indication: OROPHARYNGEAL PAIN
     Route: 048
     Dates: start: 20120822, end: 20120825
  35. ROBITUSSIN AC (UNITED STATES) [Concomitant]
     Indication: COUGH
     Route: 048
     Dates: start: 20120919, end: 20120922
  36. DULCOLAX (BISACODYL) [Concomitant]
     Active Substance: BISACODYL
     Indication: CONSTIPATION
     Route: 048
     Dates: start: 20120903
  37. ZOPAM [Concomitant]
     Indication: NAUSEA
     Route: 048
     Dates: start: 20120919, end: 20121104
  38. ATEZOLIZUMAB [Suspect]
     Active Substance: ATEZOLIZUMAB
     Dosage: MOST RECENT DOSE PRIOR TO VOMITING: 2186MG ON 12/SEP/2012?LAST DOSE PRIOR TO FATAL NEOPLASTIC MALIGN
     Route: 042
     Dates: start: 20120912
  39. ACYCLOVIR. [Concomitant]
     Active Substance: ACYCLOVIR
     Indication: OROPHARYNGEAL PAIN
     Route: 065
     Dates: start: 20120830, end: 20120831

REACTIONS (5)
  - Pyrexia [Recovered/Resolved]
  - Malignant neoplasm progression [Fatal]
  - Vomiting [Recovered/Resolved]
  - Diarrhoea [Not Recovered/Not Resolved]
  - Dehydration [Recovered/Resolved]

NARRATIVE: CASE EVENT DATE: 20120826
